FAERS Safety Report 4765559-3 (Version None)
Quarter: 2005Q3

REPORT INFORMATION
  Report Type: 
  Country: None (occurrence: None)
  Receive Date: 20050906
  Receipt Date: 20050823
  Transmission Date: 20060218
  Serious: Yes (Other)
  Sender: FDA-Public Use
  Company Number: 2005120890

PATIENT
  Age: 70 Year
  Sex: Female

DRUGS (8)
  1. AROMASIN [Suspect]
     Indication: BREAST CANCER
     Dosage: 25 MG (25 MG, 1 IN 1 D), ORAL
     Route: 048
     Dates: start: 20030514
  2. IMOVANE (ZOPICLONE) [Concomitant]
  3. PIASCLEDINE (PERSEAE OLEUM, SOYA OIL) [Concomitant]
  4. AOTAL (ACAMPROSATE) [Concomitant]
  5. TROPHIGIL (ESTRIOL, LACTOBACILLUS ACIDOPHILUS, PROGESTERONE) [Concomitant]
  6. LOVENOX [Concomitant]
  7. POLY-KARAYA (POLYVIDONE, STERCULIA) [Concomitant]
  8. METFORMIN HCL [Concomitant]

REACTIONS (4)
  - CHEST WALL PAIN [None]
  - FOOT FRACTURE [None]
  - GASTROINTESTINAL DISORDER [None]
  - VULVOVAGINAL DRYNESS [None]
